FAERS Safety Report 19551281 (Version 4)
Quarter: 2021Q3

REPORT INFORMATION
  Report Type: Report from Study
  Country: BR (occurrence: BR)
  Receive Date: 20210715
  Receipt Date: 20210825
  Transmission Date: 20211014
  Serious: Yes (Hospitalization, Other)
  Sender: FDA-Public Use
  Company Number: NVSC2021BR073305

PATIENT
  Age: 51 Year
  Sex: Male
  Weight: 95 kg

DRUGS (5)
  1. GILENYA [Suspect]
     Active Substance: FINGOLIMOD HYDROCHLORIDE
     Dosage: UNK UNK, QD
     Route: 065
  2. GILENYA [Suspect]
     Active Substance: FINGOLIMOD HYDROCHLORIDE
     Indication: MULTIPLE SCLEROSIS
     Dosage: UNK, QD
     Route: 065
  3. GILENYA [Suspect]
     Active Substance: FINGOLIMOD HYDROCHLORIDE
     Dosage: UNK, QOD
     Route: 065
     Dates: start: 202012
  4. GILENYA [Suspect]
     Active Substance: FINGOLIMOD HYDROCHLORIDE
     Dosage: UNK
     Route: 065
     Dates: start: 20210106, end: 202102
  5. GILENYA [Suspect]
     Active Substance: FINGOLIMOD HYDROCHLORIDE
     Dosage: UNK UNK, QOD
     Route: 065
     Dates: start: 202103

REACTIONS (20)
  - Balance disorder [Unknown]
  - Muscular weakness [Unknown]
  - Pain in extremity [Unknown]
  - Multiple sclerosis [Unknown]
  - Axillary pain [Unknown]
  - Off label use [Recovered/Resolved]
  - Visual impairment [Not Recovered/Not Resolved]
  - Anxiety [Unknown]
  - Femur fracture [Recovering/Resolving]
  - Dysphonia [Not Recovered/Not Resolved]
  - Fatigue [Unknown]
  - Finger deformity [Recovered/Resolved]
  - Hand deformity [Recovered/Resolved]
  - Malaise [Not Recovered/Not Resolved]
  - Skin lesion [Unknown]
  - Fall [Recovering/Resolving]
  - Gait disturbance [Not Recovered/Not Resolved]
  - Pain [Unknown]
  - Skin abrasion [Unknown]
  - Off label use [Recovered/Resolved]

NARRATIVE: CASE EVENT DATE: 202012
